FAERS Safety Report 7213056-8 (Version None)
Quarter: 2011Q1

REPORT INFORMATION
  Report Type: 
  Country: None (occurrence: None)
  Receive Date: 20110106
  Receipt Date: 20101230
  Transmission Date: 20110831
  Serious: Yes (Hospitalization)
  Sender: FDA-Public Use
  Company Number: B0691624A

PATIENT
  Sex: Female

DRUGS (3)
  1. IRINOTECAN HCL [Concomitant]
     Route: 042
     Dates: start: 20100801, end: 20101105
  2. ARIXTRA [Suspect]
     Indication: DEEP VEIN THROMBOSIS
     Dosage: 7.5MG PER DAY
     Route: 058
     Dates: start: 20101001, end: 20101213
  3. FLUOROURACIL [Concomitant]
     Route: 042
     Dates: start: 20100801, end: 20101105

REACTIONS (4)
  - PALLOR [None]
  - HAEMATOMA [None]
  - ANAEMIA [None]
  - INCORRECT DRUG ADMINISTRATION DURATION [None]
